FAERS Safety Report 17973250 (Version 1)
Quarter: 2020Q3

REPORT INFORMATION
  Report Type: Spontaneous
  Country: US (occurrence: US)
  Receive Date: 20200701
  Receipt Date: 20200701
  Transmission Date: 20201103
  Serious: Yes (Hospitalization)
  Sender: FDA-Public Use
  Company Number: None

PATIENT
  Sex: Male

DRUGS (1)
  1. HUMIRA [Suspect]
     Active Substance: ADALIMUMAB
     Indication: CROHN^S DISEASE
     Dosage: 40 MG  EVERY 7 DAYS SC?ON HOLD
     Route: 058
     Dates: start: 202002

REACTIONS (3)
  - Therapy interrupted [None]
  - Acute kidney injury [None]
  - Dialysis [None]
